FAERS Safety Report 10256666 (Version 1)
Quarter: 2014Q2

REPORT INFORMATION
  Report Type: Report from Study
  Country: US (occurrence: US)
  Receive Date: 20140624
  Receipt Date: 20140624
  Transmission Date: 20141212
  Serious: Yes (Hospitalization)
  Sender: FDA-Public Use
  Company Number: US-ACTELION-A-US2014-100538

PATIENT
  Age: 67 Year
  Sex: Male

DRUGS (2)
  1. TRACLEER [Suspect]
     Indication: PRODUCT USED FOR UNKNOWN INDICATION
     Dosage: UNK
     Route: 048
  2. SILDENAFIL [Concomitant]

REACTIONS (3)
  - Thyroid disorder [Unknown]
  - Pleural effusion [Unknown]
  - Swelling [Unknown]
